FAERS Safety Report 13373949 (Version 1)
Quarter: 2017Q1

REPORT INFORMATION
  Report Type: Spontaneous
  Country: US (occurrence: US)
  Receive Date: 20170327
  Receipt Date: 20170327
  Transmission Date: 20170429
  Serious: Yes (Other)
  Sender: FDA-Public Use
  Company Number: US-PFIZER INC-2017130424

PATIENT
  Age: 70 Year
  Sex: Female
  Weight: 58.97 kg

DRUGS (7)
  1. XGEVA [Concomitant]
     Active Substance: DENOSUMAB
     Indication: PROPHYLAXIS
     Dosage: SHOT INTO HER ARM ONCE A MONTH
     Dates: start: 2016
  2. CALCIUM [Concomitant]
     Active Substance: CALCIUM
     Dosage: 1800 IU, DAILY (3 WEEKS OUT OF THE MONTH)
  3. CALCIUM [Concomitant]
     Active Substance: CALCIUM
     Dosage: 3600 IU, DAILY (THE WEEK SHE GETS THE XGEVA SHOT)
  4. LETROZOLE. [Suspect]
     Active Substance: LETROZOLE
     Indication: BREAST CANCER METASTATIC
     Dosage: 2.5 MG, 1X/DAY CONTINUOUSLY
     Dates: start: 20160422
  5. IBRANCE [Suspect]
     Active Substance: PALBOCICLIB
     Indication: BREAST CANCER METASTATIC
     Dosage: 125 MG, ONCE A DAY FOR 21 DAYS, OFF FOR 7 DAYS
     Dates: start: 20160422
  6. VITAMIN D [Concomitant]
     Active Substance: CHOLECALCIFEROL
     Dosage: 5000 IU, 2X/WEEK (DOSE VARIES ACCORDING TO WHAT HER COUNTS ARE)
  7. IBRANCE [Suspect]
     Active Substance: PALBOCICLIB
     Dosage: 100 MG, UNK
     Dates: start: 201606

REACTIONS (5)
  - Disease progression [Unknown]
  - Neutropenia [Unknown]
  - Pain [Unknown]
  - Dizziness [Unknown]
  - Paraesthesia [Unknown]

NARRATIVE: CASE EVENT DATE: 201605
